FAERS Safety Report 25542836 (Version 1)
Quarter: 2025Q3

REPORT INFORMATION
  Report Type: Spontaneous
  Country: US (occurrence: US)
  Receive Date: 20250711
  Receipt Date: 20250711
  Transmission Date: 20251021
  Serious: No
  Sender: ZYDUS PHARM
  Company Number: US-CADILA HEALTHCARE LIMITED-US-ZYDUS-125042

PATIENT

DRUGS (2)
  1. SUCRALFATE [Suspect]
     Active Substance: SUCRALFATE
     Indication: Hiatus hernia
     Route: 065
     Dates: start: 202506, end: 202506
  2. SUCRALFATE [Suspect]
     Active Substance: SUCRALFATE
     Indication: Off label use

REACTIONS (4)
  - Flatulence [Recovered/Resolved]
  - Abdominal distension [Recovered/Resolved]
  - Abdominal discomfort [Recovered/Resolved]
  - Product use in unapproved indication [Recovered/Resolved]

NARRATIVE: CASE EVENT DATE: 20250601
